FAERS Safety Report 7458138-0 (Version None)
Quarter: 2011Q2

REPORT INFORMATION
  Report Type: 
  Country: None (occurrence: None)
  Receive Date: 20110504
  Receipt Date: 20110420
  Transmission Date: 20111010
  Serious: Yes (Disabling)
  Sender: FDA-Public Use
  Company Number: PHHY2011NZ33123

PATIENT
  Sex: Female

DRUGS (9)
  1. CLOZARIL [Suspect]
     Indication: HALLUCINATION, VISUAL
     Dosage: 12.5 MG NOCTE
     Route: 048
     Dates: start: 20080220, end: 20110315
  2. OXYCONTIN [Concomitant]
     Indication: PAIN
     Dosage: 10 MG, BID
  3. QUETIAPINE [Concomitant]
     Dosage: 12.5 MG, UNK
  4. PARACETAMOL [Concomitant]
     Indication: PAIN
     Dosage: 01 G, QID
  5. MIDODRINE HYDROCHLORIDE [Concomitant]
     Dosage: 05 MG, TID
     Dates: end: 20110315
  6. SINEMET [Concomitant]
     Dosage: UNK
  7. REBOXETINE [Concomitant]
     Dosage: 04 MG, UNK
     Dates: start: 20080101, end: 20110315
  8. LISURIDE [Concomitant]
     Indication: PARKINSON'S DISEASE
     Dosage: 0.2 MG, BID
     Dates: end: 20110315
  9. FLUDROCORTISONE [Concomitant]
     Dosage: 0.15 MG, BID

REACTIONS (4)
  - GENERAL PHYSICAL HEALTH DETERIORATION [None]
  - INFECTION [None]
  - DISABILITY [None]
  - ASTHENIA [None]
